FAERS Safety Report 9420655 (Version 5)
Quarter: 2014Q4

REPORT INFORMATION
  Report Type: Report from Study
  Country: FR (occurrence: FR)
  Receive Date: 20130725
  Receipt Date: 20141024
  Transmission Date: 20150529
  Serious: Yes (Life-Threatening, Hospitalization, Other)
  Sender: FDA-Public Use
  Company Number: PHHY2013FR072904

PATIENT
  Age: 17 Year
  Sex: Female

DRUGS (2)
  1. TOBRAMYCIN INHALATION POWDER [Suspect]
     Active Substance: TOBRAMYCIN
     Indication: PSEUDOMONAS INFECTION
     Dosage: 28 MG, BID
     Route: 055
     Dates: start: 20121030, end: 20130805
  2. VENTOLIN [Concomitant]
     Active Substance: ALBUTEROL SULFATE
     Indication: PRODUCT USED FOR UNKNOWN INDICATION
     Route: 065

REACTIONS (5)
  - Aspergilloma [Recovered/Resolved]
  - Haemoptysis [Unknown]
  - Bronchial disorder [Unknown]
  - Embolism arterial [Recovered/Resolved]
  - Hyperplasia [Unknown]

NARRATIVE: CASE EVENT DATE: 20121109
